FAERS Safety Report 8472494-6 (Version None)
Quarter: 2012Q2

REPORT INFORMATION
  Report Type: 
  Country: None (occurrence: None)
  Receive Date: 20120627
  Receipt Date: 20120201
  Transmission Date: 20120825
  Serious: No
  Sender: FDA-Public Use
  Company Number: US-AMGEN-USASP2012007297

PATIENT
  Sex: Female

DRUGS (2)
  1. PROCRIT [Suspect]
     Dosage: 80000 IU, QWK
     Route: 058
     Dates: start: 20111117, end: 20120101
  2. PROCRIT [Suspect]
     Indication: ANAEMIA
     Dosage: 40000 IU, QWK
     Route: 058
     Dates: start: 20120201

REACTIONS (1)
  - HAEMOGLOBIN INCREASED [None]
